FAERS Safety Report 15537079 (Version 1)
Quarter: 2018Q4

REPORT INFORMATION
  Report Type: Report from Study
  Country: FR (occurrence: FR)
  Receive Date: 20181022
  Receipt Date: 20181022
  Transmission Date: 20190205
  Serious: Yes (Hospitalization)
  Sender: FDA-Public Use
  Company Number: FR-PFIZER INC-2018425209

PATIENT
  Age: 63 Year
  Sex: Female

DRUGS (17)
  1. HYDROCHLOROTHIAZIDE. [Concomitant]
     Active Substance: HYDROCHLOROTHIAZIDE
     Indication: HYPERTENSION
     Dosage: UNK
  2. PEMETREXED. [Concomitant]
     Active Substance: PEMETREXED
     Dosage: 925 MG, Q3W
     Dates: start: 20170213, end: 20170213
  3. ONDANSETRON [Concomitant]
     Active Substance: ONDANSETRON
     Dosage: UNK
     Dates: start: 20170306, end: 20170306
  4. PEGFILGRASTIM [Concomitant]
     Active Substance: PEGFILGRASTIM
     Indication: FEBRILE NEUTROPENIA
     Dosage: UNK
     Dates: start: 20170124, end: 20170608
  5. TINZAPARIN [TINZAPARIN SODIUM] [Concomitant]
     Indication: PULMONARY EMBOLISM
     Dosage: UNK
     Dates: start: 20170126, end: 20170323
  6. SODIUM BICARBONATE BP [Concomitant]
     Active Substance: SODIUM BICARBONATE
     Indication: PROPHYLAXIS
     Dosage: UNK
     Dates: start: 20170124, end: 201802
  7. ONDANSETRON [Concomitant]
     Active Substance: ONDANSETRON
     Indication: PROPHYLAXIS
     Dosage: UNK
     Dates: start: 20170123, end: 20170123
  8. CARBOPLATIN. [Suspect]
     Active Substance: CARBOPLATIN
     Dosage: 550 MG, UNK
     Dates: start: 20170213, end: 20170213
  9. METOCLOPRAMIDE. [Concomitant]
     Active Substance: METOCLOPRAMIDE
     Indication: PROPHYLAXIS
     Dosage: UNK
     Dates: start: 20170124, end: 20170608
  10. BISOPROLOL [Concomitant]
     Active Substance: BISOPROLOL
     Indication: HYPERTENSION
     Dosage: UNK
  11. ATEZOLIZUMAB. [Suspect]
     Active Substance: ATEZOLIZUMAB
     Indication: NON-SMALL CELL LUNG CANCER STAGE IV
     Dosage: 1200 MG, Q3W
     Route: 042
     Dates: start: 20170123
  12. PEMETREXED. [Concomitant]
     Active Substance: PEMETREXED
     Dosage: 500 MG/M2, Q3W
     Route: 042
     Dates: start: 20170123, end: 20170123
  13. ONDANSETRON [Concomitant]
     Active Substance: ONDANSETRON
     Dosage: UNK
     Dates: start: 20170213, end: 20170213
  14. DESLORATADINE. [Concomitant]
     Active Substance: DESLORATADINE
     Indication: HYPERSENSITIVITY
     Dosage: UNK
     Dates: start: 201711, end: 201712
  15. CARBOPLATIN. [Suspect]
     Active Substance: CARBOPLATIN
     Indication: NON-SMALL CELL LUNG CANCER STAGE IV
     Dosage: 6 MG/ML/MIN6 UNK
     Route: 042
     Dates: start: 20170123, end: 20170123
  16. FOLIC ACID. [Concomitant]
     Active Substance: FOLIC ACID
     Indication: PROPHYLAXIS
     Dosage: UNK
     Dates: start: 20170105, end: 20171016
  17. VITAMIN B12 [Concomitant]
     Active Substance: CYANOCOBALAMIN
     Indication: PROPHYLAXIS
     Dosage: UNK
     Dates: start: 20170105, end: 20171016

REACTIONS (1)
  - Urinary tract infection [Recovered/Resolved]

NARRATIVE: CASE EVENT DATE: 20170219
